FAERS Safety Report 5226650-0 (Version None)
Quarter: 2007Q1

REPORT INFORMATION
  Report Type: 
  Country: None (occurrence: None)
  Receive Date: 20070201
  Receipt Date: 20070117
  Transmission Date: 20070707
  Serious: Yes (Other)
  Sender: FDA-Public Use
  Company Number: AT-SHR-AT-2006-033368

PATIENT
  Age: 67 Year
  Sex: Male

DRUGS (6)
  1. CAMPATH [Suspect]
     Dosage: 3 MG, 1 DOSE
     Dates: start: 20040510, end: 20040510
  2. CAMPATH [Suspect]
     Dosage: 10 MG, 1 DOSE
     Dates: start: 20040511, end: 20040511
  3. CAMPATH [Suspect]
     Dosage: 30 MG, 1 DOSE
     Dates: start: 20040512, end: 20040512
  4. CAMPATH [Suspect]
     Dosage: 30 MG, 3X/WEEK
     Dates: start: 20040513
  5. VALACYCLOVIR HCL [Concomitant]
     Indication: INFECTION PROPHYLAXIS
  6. SULFAMETHOXAZOLE W/TRIMETHOPRIM [Concomitant]
     Indication: INFECTION PROPHYLAXIS

REACTIONS (5)
  - BASAL CELL CARCINOMA [None]
  - MALIGNANT MELANOMA [None]
  - MALIGNANT MELANOMA IN SITU [None]
  - METASTASES TO LYMPH NODES [None]
  - METASTASES TO SOFT TISSUE [None]
